FAERS Safety Report 8340679-5 (Version None)
Quarter: 2012Q2

REPORT INFORMATION
  Report Type: 
  Country: None (occurrence: None)
  Receive Date: 20120507
  Receipt Date: 20120426
  Transmission Date: 20120825
  Serious: Yes (Hospitalization, Other)
  Sender: FDA-Public Use
  Company Number: US-ROCHE-1057338

PATIENT
  Sex: Male

DRUGS (4)
  1. PEGASYS [Suspect]
     Indication: HEPATITIS C
     Route: 065
     Dates: start: 20111228, end: 20120302
  2. INCIVEK [Suspect]
     Indication: HEPATITIS C
     Route: 065
     Dates: start: 20111228, end: 20120302
  3. HYDROCODONE [Concomitant]
     Indication: PAIN
  4. COPEGUS [Suspect]
     Indication: HEPATITIS C
     Route: 065
     Dates: start: 20111228, end: 20120302

REACTIONS (9)
  - PROSTATIC ABSCESS [None]
  - BENIGN PROSTATIC HYPERPLASIA [None]
  - URINARY RETENTION [None]
  - GASTRITIS [None]
  - ORAL CANDIDIASIS [None]
  - HAEMORRHAGE [None]
  - ANAEMIA [None]
  - BARRETT'S OESOPHAGUS [None]
  - GASTRIC VARICES [None]
